FAERS Safety Report 7990905-7 (Version None)
Quarter: 2011Q4

REPORT INFORMATION
  Report Type: 
  Country: None (occurrence: None)
  Receive Date: 20111219
  Receipt Date: 20111215
  Transmission Date: 20120403
  Serious: Yes (Death, Life-Threatening, Hospitalization)
  Sender: FDA-Public Use
  Company Number: NZ-B.I. PHARMACEUTICALS,INC./RIDGEFIELD-2011-AU-02264AU

PATIENT
  Sex: Male
  Weight: 61 kg

DRUGS (7)
  1. PRADAXA [Suspect]
     Indication: ATRIAL FIBRILLATION
     Dosage: 220 MG
     Dates: start: 20110811, end: 20110830
  2. ZOPICLONE [Concomitant]
     Dosage: 3.75 MG
     Dates: start: 20110811
  3. DILTIAZEM HCL [Concomitant]
     Dosage: 120 MG
     Dates: start: 20110811
  4. TAMSULOSIN HYDROCHLORIDE [Concomitant]
     Dosage: 400 MCG
     Dates: start: 20110811
  5. DIGOXIN [Suspect]
     Dosage: 125 MCG
     Dates: start: 20110811
  6. OXYCONTIN [Concomitant]
     Dosage: 10 MG
     Dates: start: 20110811
  7. FUROSEMIDE [Concomitant]
     Dosage: 80 MG
     Dates: start: 20110824

REACTIONS (3)
  - RECTAL HAEMORRHAGE [None]
  - RENAL FAILURE [None]
  - TOXICITY TO VARIOUS AGENTS [None]
